FAERS Safety Report 21742680 (Version 3)
Quarter: 2023Q1

REPORT INFORMATION
  Report Type: Report from Study
  Country: US (occurrence: US)
  Receive Date: 20221217
  Receipt Date: 20230222
  Transmission Date: 20230418
  Serious: No
  Sender: FDA-Public Use
  Company Number: US-002147023-NVSC2022US288901

PATIENT
  Sex: Male

DRUGS (2)
  1. SCEMBLIX [Suspect]
     Active Substance: ASCIMINIB HYDROCHLORIDE
     Indication: Product used for unknown indication
     Dosage: 1 DOSAGE FORM, QD
     Route: 048
  2. SCEMBLIX [Suspect]
     Active Substance: ASCIMINIB HYDROCHLORIDE
     Dosage: UNK
     Route: 048

REACTIONS (10)
  - Blood potassium decreased [Unknown]
  - Eye irritation [Unknown]
  - Arthralgia [Unknown]
  - Back pain [Unknown]
  - Blood pressure increased [Unknown]
  - Fatigue [Unknown]
  - Decreased appetite [Unknown]
  - Vision blurred [Unknown]
  - Rash [Unknown]
  - Pruritus [Unknown]
